FAERS Safety Report 7807266-6 (Version None)
Quarter: 2011Q4

REPORT INFORMATION
  Report Type: 
  Country: None (occurrence: None)
  Receive Date: 20111011
  Receipt Date: 20111005
  Transmission Date: 20120403
  Serious: Yes (Other)
  Sender: FDA-Public Use
  Company Number: US-PFIZER INC-2011238239

PATIENT
  Sex: Female
  Weight: 61.7 kg

DRUGS (7)
  1. PROTONIX [Concomitant]
     Indication: REFLUX GASTRITIS
     Dosage: 40 MG, DAILY
  2. ZANTAC [Concomitant]
     Indication: REFLUX GASTRITIS
     Dosage: 150 MG, DAILY
  3. EVOXAC [Concomitant]
     Indication: SJOGREN'S SYNDROME
     Dosage: 30 MG, DAILY
  4. RELPAX [Suspect]
     Indication: MIGRAINE
     Dosage: 40 MG, AS NEEDED
     Dates: start: 20101101
  5. ASMANEX TWISTHALER [Concomitant]
     Indication: ASTHMA
     Dosage: 1 TO 2 PUFFS A DAY AS NEEDED
  6. SIMVASTATIN [Concomitant]
     Indication: BLOOD CHOLESTEROL ABNORMAL
     Dosage: 20 MG, DAILY
  7. ZYRTEC [Concomitant]
     Indication: HYPERSENSITIVITY
     Dosage: 10 MG, DAILY

REACTIONS (1)
  - CANDIDIASIS [None]
